FAERS Safety Report 15488528 (Version 1)
Quarter: 2018Q4

REPORT INFORMATION
  Report Type: Spontaneous
  Country: CN (occurrence: CN)
  Receive Date: 20181011
  Receipt Date: 20181011
  Transmission Date: 20190205
  Serious: No
  Sender: FDA-Public Use
  Company Number: CN-IPSEN BIOPHARMACEUTICALS, INC.-2018-15155

PATIENT
  Sex: Male

DRUGS (1)
  1. SOMATULINE 40MG [Suspect]
     Active Substance: LANREOTIDE ACETATE
     Indication: ACROMEGALY
     Route: 030
     Dates: start: 201808

REACTIONS (3)
  - Insomnia [Unknown]
  - Myalgia [Unknown]
  - Pyrexia [Unknown]
